FAERS Safety Report 23848440 (Version 1)
Quarter: 2024Q2

REPORT INFORMATION
  Report Type: Spontaneous
  Country: US (occurrence: US)
  Receive Date: 20240513
  Receipt Date: 20240513
  Transmission Date: 20240715
  Serious: No
  Sender: FDA-Public Use
  Company Number: US-PFIZER INC-202400050160

PATIENT
  Age: 6 Year
  Sex: Female
  Weight: 25 kg

DRUGS (1)
  1. OXBRYTA [Suspect]
     Active Substance: VOXELOTOR
     Indication: Sickle cell disease
     Dosage: 300 MG/3 TABLETS FOR ORAL SUSPENSION BY MOUTH ONCE DAILY
     Route: 048
     Dates: end: 202401

REACTIONS (1)
  - Magnetic resonance imaging head abnormal [Unknown]
